FAERS Safety Report 22296304 (Version 2)
Quarter: 2023Q2

REPORT INFORMATION
  Report Type: Report from Study
  Country: RO (occurrence: RO)
  Receive Date: 20230508
  Receipt Date: 20230522
  Transmission Date: 20230721
  Serious: Yes (Hospitalization)
  Sender: FDA-Public Use
  Company Number: RO-002147023-NVSC2023RO095683

PATIENT

DRUGS (3)
  1. RUXOLITINIB [Suspect]
     Active Substance: RUXOLITINIB
     Indication: Spleen disorder
     Dosage: 20 MG (1 IN THE MORNING, 1 IN THE EVENING)
     Route: 048
     Dates: start: 20230328, end: 202304
  2. RUXOLITINIB [Suspect]
     Active Substance: RUXOLITINIB
     Indication: Primary myelofibrosis
  3. SULODEXIDE [Concomitant]
     Active Substance: SULODEXIDE
     Indication: Product used for unknown indication
     Dosage: UNK (IN THE MORNING AND EVENING)
     Route: 065
     Dates: start: 202107

REACTIONS (2)
  - Haemoglobin decreased [Recovered/Resolved]
  - Product use in unapproved indication [Not Recovered/Not Resolved]

NARRATIVE: CASE EVENT DATE: 20230328
